FAERS Safety Report 7513557-9 (Version None)
Quarter: 2011Q2

REPORT INFORMATION
  Report Type: 
  Country: None (occurrence: None)
  Receive Date: 20110531
  Receipt Date: 20110526
  Transmission Date: 20111010
  Serious: Yes (Life-Threatening, Other)
  Sender: FDA-Public Use
  Company Number: CA-BAYER-2011-045538

PATIENT
  Age: 55 Year
  Sex: Female
  Weight: 52 kg

DRUGS (6)
  1. LYRICA [Suspect]
     Dosage: 50 MG, QD
     Route: 048
  2. NORFLOXACIN [Suspect]
     Dosage: 200 MG, BIW
     Route: 048
  3. CYMBALTA [Suspect]
     Dosage: 60 MG, QD
     Route: 048
  4. CIPRO XR [Suspect]
     Dosage: 500 MG, QD
     Route: 048
  5. DOCUSATE [Concomitant]
     Dosage: UNK
     Route: 065
  6. LACTULOSE [Concomitant]
     Dosage: UNK
     Route: 065

REACTIONS (2)
  - CONSTIPATION [None]
  - SENSITIVITY OF TEETH [None]
